FAERS Safety Report 24011369 (Version 1)
Quarter: 2024Q2

REPORT INFORMATION
  Report Type: Spontaneous
  Country: CN (occurrence: CN)
  Receive Date: 20240625
  Receipt Date: 20240625
  Transmission Date: 20240716
  Serious: Yes (Hospitalization, Other)
  Sender: FDA-Public Use
  Company Number: None

PATIENT
  Age: 54 Year
  Sex: Female
  Weight: 44 kg

DRUGS (4)
  1. CYCLOPHOSPHAMIDE [Suspect]
     Active Substance: CYCLOPHOSPHAMIDE
     Indication: Invasive breast carcinoma
     Dosage: 0.6 G, ONE TIME IN ONE DAY, DILUTED WITH 500 ML OF 0.9% SODIUM CHLORIDE
     Route: 041
     Dates: start: 20240601, end: 20240601
  2. DOXORUBICIN HYDROCHLORIDE [Suspect]
     Active Substance: DOXORUBICIN HYDROCHLORIDE
     Indication: Invasive breast carcinoma
     Dosage: 69 MG, ONE TIME IN ONE DAY, DILUTED WITH 500 ML OF 0.9% SODIUM CHLORIDE
     Route: 041
     Dates: start: 20240601, end: 20240601
  3. SODIUM CHLORIDE [Suspect]
     Active Substance: SODIUM CHLORIDE
     Indication: Medication dilution
     Dosage: 500 ML, ONE TIME IN ONE DAY, USED TO DILUTE 0.6 G OF CYCLOPHOSPHAMIDE
     Route: 041
     Dates: start: 20240601, end: 20240601
  4. SODIUM CHLORIDE [Suspect]
     Active Substance: SODIUM CHLORIDE
     Dosage: 500 ML, ONE TIME IN ONE DAY, USED TO DILUTE 69 MG OF DOXORUBICIN HYDROCHLORIDE
     Route: 041
     Dates: start: 20240601, end: 20240601

REACTIONS (2)
  - Gastrointestinal disorder [Unknown]
  - Vomiting [Not Recovered/Not Resolved]

NARRATIVE: CASE EVENT DATE: 20240601
